FAERS Safety Report 7564200-4 (Version None)
Quarter: 2011Q2

REPORT INFORMATION
  Report Type: 
  Country: None (occurrence: None)
  Receive Date: 20110622
  Receipt Date: 20110607
  Transmission Date: 20111010
  Serious: Yes (Hospitalization)
  Sender: FDA-Public Use
  Company Number: PHHY2011FR50646

PATIENT
  Sex: Female
  Weight: 69 kg

DRUGS (1)
  1. EXJADE [Suspect]
     Indication: HAEMOCHROMATOSIS
     Dosage: 1500 MG DAILY
     Dates: start: 20070322

REACTIONS (5)
  - TENDONITIS [None]
  - BURSITIS [None]
  - PYREXIA [None]
  - JOINT SWELLING [None]
  - ARTHRALGIA [None]
